FAERS Safety Report 4559563-8 (Version None)
Quarter: 2005Q1

REPORT INFORMATION
  Report Type: 
  Country: None (occurrence: None)
  Receive Date: 20050124
  Receipt Date: 20050112
  Transmission Date: 20050727
  Serious: Yes (Death, Life-Threatening, Other)
  Sender: FDA-Public Use
  Company Number: GB-JNJFOC-20050101405

PATIENT
  Sex: Male
  Weight: 102 kg

DRUGS (12)
  1. REMICADE [Suspect]
     Indication: RHEUMATOID ARTHRITIS
     Route: 042
  2. METHOTREXATE [Concomitant]
  3. PREDNISOLONE [Concomitant]
  4. FOLIC ACID [Concomitant]
  5. ASPIRIN [Concomitant]
  6. NICORANDIL [Concomitant]
  7. SIMVASTATIN [Concomitant]
  8. BUMERANIDE [Concomitant]
  9. KAPAKE [Concomitant]
  10. KAPAKE [Concomitant]
  11. BISOPROLOL FUMARATE [Concomitant]
  12. CAPTOPRIL [Concomitant]

REACTIONS (3)
  - MYOCARDIAL ISCHAEMIA [None]
  - PNEUMOCONIOSIS [None]
  - PNEUMONIA [None]
